FAERS Safety Report 15948577 (Version 2)
Quarter: 2019Q1

REPORT INFORMATION
  Report Type: Spontaneous
  Country: FR (occurrence: FR)
  Receive Date: 20190212
  Receipt Date: 20190223
  Transmission Date: 20190417
  Serious: Yes (Hospitalization)
  Sender: FDA-Public Use
  Company Number: FR-ACCORD-106404

PATIENT
  Age: 79 Year
  Sex: Male
  Weight: 85 kg

DRUGS (10)
  1. VECTIBIX [Suspect]
     Active Substance: PANITUMUMAB
     Indication: COLORECTAL CANCER
     Dosage: STRENGTH : 20 MG / ML
     Route: 042
     Dates: start: 20180308
  2. COTAREG [Concomitant]
     Active Substance: HYDROCHLOROTHIAZIDE\VALSARTAN
  3. ALDACTONE [Concomitant]
     Active Substance: SPIRONOLACTONE
  4. TAMSULOSIN/TAMSULOSIN HYDROCHLORIDE [Concomitant]
  5. BISOPROLOL [Concomitant]
     Active Substance: BISOPROLOL
  6. FLUOROURACIL. [Suspect]
     Active Substance: FLUOROURACIL
     Indication: COLORECTAL CANCER
     Route: 042
     Dates: start: 20180202
  7. IRINOTECAN [Suspect]
     Active Substance: IRINOTECAN
     Indication: COLORECTAL CANCER
     Route: 042
     Dates: start: 20180202
  8. PLAVIX [Concomitant]
     Active Substance: CLOPIDOGREL BISULFATE
  9. FENOFIBRATE. [Concomitant]
     Active Substance: FENOFIBRATE
  10. EZETROL [Concomitant]
     Active Substance: EZETIMIBE
     Dosage: STRENGTH : 10 MG

REACTIONS (3)
  - Weight decreased [Recovering/Resolving]
  - Campylobacter gastroenteritis [Recovering/Resolving]
  - Paraesthesia oral [Not Recovered/Not Resolved]

NARRATIVE: CASE EVENT DATE: 201805
